FAERS Safety Report 6120285-3 (Version None)
Quarter: 2009Q1

REPORT INFORMATION
  Report Type: 
  Country: None (occurrence: None)
  Receive Date: 20090312
  Receipt Date: 20090225
  Transmission Date: 20090719
  Serious: Yes (Hospitalization, Other)
  Sender: FDA-Public Use
  Company Number: 2009S1003444

PATIENT
  Age: 83 Year
  Sex: Male
  Weight: 76 kg

DRUGS (11)
  1. FUROSEMIDE [Suspect]
     Indication: HYPERTENSION
     Dosage: 20 MG; DAILY; ORAL
     Route: 048
     Dates: end: 20080305
  2. FUROSEMIDE [Suspect]
     Indication: HYPERTENSION
     Dosage: 20 MG; DAILY; ORAL
     Route: 048
     Dates: start: 20080312
  3. SPIRONOLACTONE [Suspect]
     Indication: CARDIAC FAILURE
     Dosage: 25 MG; DAILY; ORAL
     Route: 048
     Dates: start: 20060201, end: 20080305
  4. SPIRONOLACTONE [Suspect]
     Indication: CARDIAC FAILURE
     Dosage: 25 MG; DAILY; ORAL
     Route: 048
     Dates: start: 20080312
  5. TORASEMIDE (TORASEMIDE) (5 MG) [Suspect]
     Indication: HYPERTENSION
     Dosage: 5 MG; DAILY ;ORAL
     Route: 048
     Dates: start: 20080201, end: 20080305
  6. XIPAMID BETA [Concomitant]
  7. ACTRAPID [Concomitant]
  8. DIGITOXIN [Concomitant]
  9. FALITHROM [Concomitant]
  10. PENTALONG [Concomitant]
  11. RAMIPRIL [Concomitant]

REACTIONS (1)
  - DEHYDRATION [None]
